FAERS Safety Report 9370114 (Version 1)
Quarter: 2013Q2

REPORT INFORMATION
  Report Type: Spontaneous
  Country: US (occurrence: None)
  Receive Date: 20130621
  Receipt Date: 20130621
  Transmission Date: 20140414
  Serious: Yes (Hospitalization)
  Sender: FDA-Public Use
  Company Number: 2013AP006085

PATIENT
  Age: 15 Year
  Sex: Female

DRUGS (2)
  1. TRAMADOL HYDROCHLORIDE TABLETS [Suspect]
  2. PREGABALIN [Suspect]

REACTIONS (5)
  - Mydriasis [None]
  - Convulsion [None]
  - Ataxia [None]
  - Hyperreflexia [None]
  - Drug abuse [None]
